FAERS Safety Report 6279991-2 (Version None)
Quarter: 2009Q3

REPORT INFORMATION
  Report Type: 
  Country: None (occurrence: None)
  Receive Date: 20090723
  Receipt Date: 20090417
  Transmission Date: 20100115
  Serious: Yes (Hospitalization)
  Sender: FDA-Public Use
  Company Number: US-AMGEN-US345200

PATIENT
  Sex: Female
  Weight: 66.2 kg

DRUGS (14)
  1. PROCRIT [Suspect]
     Indication: ANAEMIA
     Route: 058
     Dates: start: 20051201, end: 20060530
  2. LEVOTHYROXINE SODIUM [Concomitant]
  3. MIDAZOLAM HYDROCHLORIDE [Concomitant]
  4. LORAZEPAM [Concomitant]
  5. FENTANYL-100 [Concomitant]
  6. METHOCARBAMOL [Concomitant]
  7. DIPHENHYDRAMINE HYDROCHLORIDE [Concomitant]
  8. DOCUSATE SODIUM [Concomitant]
  9. MAGNESIUM HYDROXIDE TAB [Concomitant]
  10. PERCOCET [Concomitant]
  11. VENLAFAXINE HYDROCHLORIDE [Concomitant]
  12. BACITRACIN [Concomitant]
  13. ZINC [Concomitant]
  14. ENOXAPARIN SODIUM [Concomitant]

REACTIONS (1)
  - DEEP VEIN THROMBOSIS [None]
